FAERS Safety Report 25803928 (Version 2)
Quarter: 2025Q4

REPORT INFORMATION
  Report Type: Report from Study
  Country: CH (occurrence: CH)
  Receive Date: 20250915
  Receipt Date: 20251015
  Transmission Date: 20260117
  Serious: Yes (Hospitalization)
  Sender: ABBVIE
  Company Number: CH-ABBVIE-6453764

PATIENT
  Age: 61 Year
  Sex: Male

DRUGS (3)
  1. CARBIDOPA [Suspect]
     Active Substance: CARBIDOPA
     Indication: Parkinson^s disease
     Dosage: CURRENT PRESCRIBED DOSAGE AT ADMISSION: MD 3.1ML, CRD 2.9ML/H, CRN 1.1ML, ED 2ML.
     Route: 050
     Dates: start: 20230111
  2. CARBIDOPA [Suspect]
     Active Substance: CARBIDOPA
     Dosage: CURRENT DOSAGE: MD 3.0 ML, CRT 3.3 ML/H, CRN 1.1 ML, ED 2 ML.
     Route: 050
  3. CARBIDOPA [Suspect]
     Active Substance: CARBIDOPA
     Dosage: CURRENT DOSAGE: MD 3.0ML/CRD 3.1ML/H/CRN 1.1ML/H/ED 2.0ML
     Route: 050

REACTIONS (11)
  - Paranoia [Unknown]
  - Dysphagia [Unknown]
  - Depression [Unknown]
  - Weight decreased [Unknown]
  - General physical health deterioration [Unknown]
  - Malnutrition [Not Recovered/Not Resolved]
  - Mobility decreased [Unknown]
  - Speech disorder [Unknown]
  - Frustration tolerance decreased [Unknown]
  - Therapeutic product effect incomplete [Unknown]
  - Grip strength decreased [Not Recovered/Not Resolved]

NARRATIVE: CASE EVENT DATE: 20250909
